FAERS Safety Report 4433292-3 (Version None)
Quarter: 2004Q3

REPORT INFORMATION
  Report Type: 
  Country: None (occurrence: None)
  Receive Date: 20040824
  Receipt Date: 20040811
  Transmission Date: 20050211
  Serious: Yes (Hospitalization, Other)
  Sender: FDA-Public Use
  Company Number: 2004054853

PATIENT
  Age: 65 Year
  Sex: Female

DRUGS (4)
  1. NEURONTIN [Suspect]
     Indication: DIABETIC NEUROPATHY
     Dosage: 900 MG (300 MG, 3 IN 1 D)
  2. NAPROXEN SODIUM [Suspect]
     Dosage: ILL-DEFINED DISORDER
  3. INSULIN [Concomitant]
  4. ALL OTHE THERAPEUTIC PRODUCTS (ALL OTHER THERAPEUTIC PRODUCTS (ALL OTH [Concomitant]

REACTIONS (4)
  - INTENTIONAL OVERDOSE [None]
  - IRRITABILITY [None]
  - MOOD SWINGS [None]
  - SUICIDE ATTEMPT [None]
